FAERS Safety Report 18343619 (Version 1)
Quarter: 2020Q4

REPORT INFORMATION
  Report Type: Spontaneous
  Country: US (occurrence: US)
  Receive Date: 20201005
  Receipt Date: 20201005
  Transmission Date: 20210113
  Serious: No
  Sender: FDA-Public Use
  Company Number: US-PFIZER INC-2020380358

PATIENT
  Age: 70 Year
  Sex: Female

DRUGS (1)
  1. SUTENT [Suspect]
     Active Substance: SUNITINIB MALATE
     Indication: GASTROINTESTINAL STROMAL TUMOUR
     Dosage: 50 MG, CYCLIC (QD X 4 WEEKS, 2 WEEKS OFF)
     Route: 048

REACTIONS (4)
  - Tongue blistering [Unknown]
  - Stomatitis [Unknown]
  - Lip dry [Unknown]
  - Blister [Unknown]
